FAERS Safety Report 14190483 (Version 1)
Quarter: 2017Q4

REPORT INFORMATION
  Report Type: Report from Study
  Country: PK (occurrence: PK)
  Receive Date: 20171115
  Receipt Date: 20171115
  Transmission Date: 20180321
  Serious: Yes (Death)
  Sender: FDA-Public Use
  Company Number: PK-INCYTE CORPORATION-2017IN009726

PATIENT

DRUGS (2)
  1. FILGEN [Interacting]
     Active Substance: FILGRASTIM
     Indication: PRODUCT USED FOR UNKNOWN INDICATION
     Dosage: 2 DF, QW2 (TWICE A WEEK)
     Route: 042
     Dates: start: 20171021
  2. JAKAVI [Suspect]
     Active Substance: RUXOLITINIB
     Indication: PRODUCT USED FOR UNKNOWN INDICATION
     Dosage: 20 MG, BID
     Route: 048
     Dates: start: 20170925

REACTIONS (4)
  - Drug interaction [Unknown]
  - Diarrhoea [Fatal]
  - Fall [Fatal]
  - Vomiting [Fatal]

NARRATIVE: CASE EVENT DATE: 20171031
